FAERS Safety Report 6901972-3 (Version None)
Quarter: 2010Q3

REPORT INFORMATION
  Report Type: 
  Country: None (occurrence: None)
  Receive Date: 20100803
  Receipt Date: 20080402
  Transmission Date: 20110219
  Serious: No
  Sender: FDA-Public Use
  Company Number: US-PFIZER INC-2008029654

PATIENT
  Sex: Female
  Weight: 59 kg

DRUGS (10)
  1. LYRICA [Suspect]
     Indication: FIBROMYALGIA
     Dates: start: 20080401, end: 20080401
  2. LYRICA [Suspect]
     Indication: NERVE INJURY
  3. CELEBREX [Concomitant]
  4. LAMICTAL [Concomitant]
  5. NADOLOL [Concomitant]
  6. KLONOPIN [Concomitant]
  7. LORTAB [Concomitant]
  8. TRAMADOL HYDROCHLORIDE [Concomitant]
  9. FIORICET [Concomitant]
  10. ZANAFLEX [Concomitant]

REACTIONS (2)
  - DIZZINESS [None]
  - INSOMNIA [None]
